FAERS Safety Report 7449701-1 (Version None)
Quarter: 2011Q2

REPORT INFORMATION
  Report Type: 
  Country: None (occurrence: None)
  Receive Date: 20110421
  Receipt Date: 20110407
  Transmission Date: 20111010
  Serious: Yes (Other)
  Sender: FDA-Public Use
  Company Number: DSA_45389_2011

PATIENT
  Age: 90 Year
  Sex: Female

DRUGS (3)
  1. FUROSEMIDE [Suspect]
     Indication: HYPERTENSION
     Dosage: 40 MG QD ORAL
     Route: 048
     Dates: start: 20100930, end: 20101209
  2. ENALAPRIL MALEATE [Suspect]
     Indication: HYPERTENSION
     Dosage: 20 MG QD ORAL
     Route: 048
     Dates: start: 20100622
  3. ESIDREX (ESIDREX-HYDROCHLOROTHIAZIDE) 12.5 MG (NOT SPECIFIED) [Suspect]
     Indication: HYPERTENSION
     Dosage: 12.5 MG QD ORAL
     Route: 048
     Dates: start: 20101008

REACTIONS (5)
  - HYPONATRAEMIA [None]
  - FACIAL BONES FRACTURE [None]
  - FALL [None]
  - MALAISE [None]
  - CONDITION AGGRAVATED [None]
